FAERS Safety Report 18599936 (Version 1)
Quarter: 2020Q4

REPORT INFORMATION
  Report Type: Spontaneous
  Country: US (occurrence: US)
  Receive Date: 20201210
  Receipt Date: 20201210
  Transmission Date: 20210114
  Serious: Yes (Hospitalization)
  Sender: FDA-Public Use
  Company Number: US-TARO-2020TAR01762

PATIENT
  Sex: Male
  Weight: 1.61 kg

DRUGS (1)
  1. ACETAZOLAMIDE. [Suspect]
     Active Substance: ACETAZOLAMIDE
     Indication: IDIOPATHIC INTRACRANIAL HYPERTENSION
     Dosage: UNK
     Route: 063

REACTIONS (2)
  - Metabolic acidosis [Recovered/Resolved]
  - Hypochloraemia [Recovered/Resolved]
